FAERS Safety Report 19403571 (Version 1)
Quarter: 2021Q2

REPORT INFORMATION
  Report Type: Spontaneous
  Country: ES (occurrence: ES)
  Receive Date: 20210611
  Receipt Date: 20210611
  Transmission Date: 20210717
  Serious: Yes (Hospitalization)
  Sender: FDA-Public Use
  Company Number: ES-ORGANON-O2106ESP000448

PATIENT
  Age: 25 Year
  Sex: Female
  Weight: 80 kg

DRUGS (1)
  1. NUVARING [Suspect]
     Active Substance: ETHINYL ESTRADIOL\ETONOGESTREL
     Indication: HORMONAL CONTRACEPTION
     Dosage: 1 DOSAGE FORM 1 CYCLICAL (REPORTED AS 0.120 MG/0.015 MG EVERY 24 HOURS, VAGINAL RELEASE SYSTEM, 1 VA
     Route: 067
     Dates: start: 2020

REACTIONS (2)
  - Pulmonary embolism [Unknown]
  - Pleural effusion [Unknown]

NARRATIVE: CASE EVENT DATE: 202103
